FAERS Safety Report 4802119-X (Version None)
Quarter: 2005Q4

REPORT INFORMATION
  Report Type: 
  Country: None (occurrence: None)
  Receive Date: 20051018
  Receipt Date: 20051010
  Transmission Date: 20060501
  Serious: Yes (Hospitalization)
  Sender: FDA-Public Use
  Company Number: PHRM2005FR02689

PATIENT
  Age: 67 Year
  Sex: Female

DRUGS (3)
  1. FUCIDINE CAP [Suspect]
     Dosage: 500 MG, BID
     Route: 048
     Dates: start: 20050721, end: 20050826
  2. FLUCONAZOLE [Suspect]
     Dosage: 100 MG, QD
     Route: 048
     Dates: start: 20050721, end: 20050826
  3. LESCOL [Suspect]
     Indication: HYPERCHOLESTEROLAEMIA
     Dosage: 80 MG, QD
     Route: 048
     Dates: start: 20031115, end: 20050826

REACTIONS (6)
  - BLOOD CREATINE PHOSPHOKINASE INCREASED [None]
  - DRUG INTERACTION [None]
  - MUSCLE NECROSIS [None]
  - MYALGIA [None]
  - RHABDOMYOLYSIS [None]
  - WALKING DISABILITY [None]
